FAERS Safety Report 9162561 (Version 2)
Quarter: 2013Q2

REPORT INFORMATION
  Report Type: Spontaneous
  Country: US (occurrence: US)
  Receive Date: 20130314
  Receipt Date: 20130405
  Transmission Date: 20140414
  Serious: Yes (Death)
  Sender: FDA-Public Use
  Company Number: US-PFIZER INC-2013084397

PATIENT
  Age: 68 Year
  Sex: Male

DRUGS (17)
  1. XALKORI [Suspect]
     Indication: LUNG NEOPLASM MALIGNANT
     Dosage: 250 MG, 2X/DAY
     Route: 048
     Dates: start: 20130131
  2. XALKORI [Suspect]
     Indication: LUNG CARCINOMA CELL TYPE UNSPECIFIED STAGE III
  3. HYDROCORTISONE [Concomitant]
     Dosage: 30MG Q AM + 10 MG QHS
  4. NYSTATIN [Concomitant]
     Dosage: UNK
  5. TYLENOL [Concomitant]
     Dosage: UNK
  6. SLOW-MAG [Concomitant]
     Dosage: 1 DF, 3X/DAY
  7. ADVAIR [Concomitant]
     Dosage: UNK
  8. VITAMIN D [Concomitant]
     Dosage: 50000 IU, WEEKLY
  9. MUCINEX [Concomitant]
     Dosage: UNK
  10. JANUVIA [Concomitant]
     Dosage: 10 MG, 1X/DAY
  11. PEPCID [Concomitant]
     Dosage: 20 MG, 2X/DAY
  12. ROBITUSSIN-DM [Concomitant]
     Dosage: UNK
  13. CHERATUSSIN [Concomitant]
     Dosage: UNK
  14. REMERON [Concomitant]
     Dosage: 7.5 MG, 1X/DAY
  15. ALDACTONE [Concomitant]
     Dosage: 25 MG, 1X/DAY
  16. MEGACE [Concomitant]
     Dosage: UNK
  17. MIRALAX [Concomitant]
     Dosage: UNK

REACTIONS (1)
  - Death [Fatal]
